FAERS Safety Report 4304662-9 (Version None)
Quarter: 2004Q1

REPORT INFORMATION
  Report Type: 
  Country: None (occurrence: None)
  Receive Date: 20040226
  Receipt Date: 20031107
  Transmission Date: 20041129
  Serious: Yes (Other)
  Sender: FDA-Public Use
  Company Number: US-GLAXOSMITHKLINE-A0439231A

PATIENT
  Age: 80 Year
  Sex: Male

DRUGS (4)
  1. WELLBUTRIN [Suspect]
     Route: 048
  2. EXELON [Concomitant]
  3. BETA-BLOCKER(UNSPECIFIED) [Concomitant]
  4. ACE-INHIBITOR [Concomitant]

REACTIONS (3)
  - HALLUCINATION, VISUAL [None]
  - HYPERTENSION [None]
  - INSOMNIA [None]
